FAERS Safety Report 5905862-4 (Version None)
Quarter: 2008Q4

REPORT INFORMATION
  Report Type: 
  Country: None (occurrence: None)
  Receive Date: 20081001
  Receipt Date: 20081001
  Transmission Date: 20090506
  Serious: Yes (Other)
  Sender: FDA-Public Use
  Company Number: None

PATIENT
  Age: 55 Year
  Sex: Female
  Weight: 70.7611 kg

DRUGS (1)
  1. SIMVASTATIN [Suspect]
     Dosage: 1 TABLET 1 X PO
     Route: 048
     Dates: start: 20080102, end: 20080801

REACTIONS (2)
  - ARTHRALGIA [None]
  - PAIN [None]
